FAERS Safety Report 6859127-7 (Version None)
Quarter: 2010Q3

REPORT INFORMATION
  Report Type: 
  Country: None (occurrence: None)
  Receive Date: 20100719
  Receipt Date: 20080220
  Transmission Date: 20110219
  Serious: No
  Sender: FDA-Public Use
  Company Number: US-PFIZER INC-2008017625

PATIENT
  Sex: Male
  Weight: 88.5 kg

DRUGS (4)
  1. CHANTIX [Suspect]
     Indication: SMOKING CESSATION THERAPY
     Dates: start: 20080101
  2. LOTREL [Concomitant]
  3. GLIPIZIDE [Concomitant]
  4. LEVITRA [Concomitant]

REACTIONS (2)
  - NASAL CONGESTION [None]
  - RHINORRHOEA [None]
